FAERS Safety Report 11776843 (Version 1)
Quarter: 2015Q4

REPORT INFORMATION
  Report Type: Spontaneous
  Country: US (occurrence: None)
  Receive Date: 20151124
  Receipt Date: 20151124
  Transmission Date: 20160304
  Serious: No
  Sender: FDA-Public Use
  Company Number: None

PATIENT
  Age: 61 Year
  Sex: Female
  Weight: 61.24 kg

DRUGS (12)
  1. ESTRACE [Suspect]
     Active Substance: ESTRADIOL
     Indication: HORMONE LEVEL ABNORMAL
     Dosage: 1 PILL
     Route: 048
     Dates: start: 20151102, end: 20151113
  2. ATIVAN [Concomitant]
     Active Substance: LORAZEPAM
  3. BENADRYL [Concomitant]
     Active Substance: DIPHENHYDRAMINE HYDROCHLORIDE
  4. MULTIVITAMIN [Concomitant]
     Active Substance: VITAMINS
  5. AMBIEN [Concomitant]
     Active Substance: ZOLPIDEM TARTRATE
  6. VICODEN [Concomitant]
  7. VITAMIN E [Concomitant]
     Active Substance: .ALPHA.-TOCOPHEROL
  8. LEXAPRO [Concomitant]
     Active Substance: ESCITALOPRAM OXALATE
  9. LEVOTHYROXINE. [Concomitant]
     Active Substance: LEVOTHYROXINE
  10. NIACINAMIDE B [Concomitant]
  11. ESTRACE [Suspect]
     Active Substance: ESTRADIOL
     Indication: HOT FLUSH
     Dosage: 1 PILL
     Route: 048
     Dates: start: 20151102, end: 20151113
  12. QUERCITIN [Concomitant]

REACTIONS (6)
  - Dizziness [None]
  - Product physical issue [None]
  - Hot flush [None]
  - Disease recurrence [None]
  - Nausea [None]
  - Product odour abnormal [None]

NARRATIVE: CASE EVENT DATE: 20151102
